FAERS Safety Report 9171981 (Version 3)
Quarter: 2013Q2

REPORT INFORMATION
  Report Type: Spontaneous
  Country: US (occurrence: US)
  Receive Date: 20130319
  Receipt Date: 20130612
  Transmission Date: 20140414
  Serious: Yes (Other)
  Sender: FDA-Public Use
  Company Number: US-FRI-1000043481

PATIENT
  Age: 20 Year
  Sex: Male
  Weight: 73.5 kg

DRUGS (4)
  1. LINZESS [Suspect]
     Indication: IRRITABLE BOWEL SYNDROME
     Dosage: 290 MCG
     Route: 048
     Dates: start: 20130218, end: 20130226
  2. LINZESS [Suspect]
     Indication: ABDOMINAL PAIN
  3. IBUPROFEN [Concomitant]
     Indication: PAIN
     Dosage: 200 MG PRN
  4. HYDROCORTISONE [Concomitant]
     Indication: HAEMORRHOIDS
     Dosage: 2.5% BID PRN
     Route: 054

REACTIONS (1)
  - Melaena [Recovered/Resolved]
